FAERS Safety Report 19003007 (Version 5)
Quarter: 2022Q1

REPORT INFORMATION
  Report Type: Spontaneous
  Country: US (occurrence: US)
  Receive Date: 20210312
  Receipt Date: 20220224
  Transmission Date: 20220423
  Serious: Yes (Life-Threatening, Disabling)
  Sender: FDA-Public Use
  Company Number: US-AMERICAN REGENT INC-2021000602

PATIENT
  Sex: Female
  Weight: 35.102 kg

DRUGS (16)
  1. FERRIC CARBOXYMALTOSE [Suspect]
     Active Substance: FERRIC CARBOXYMALTOSE
     Indication: Anaemia
     Dosage: 525 MILLIGRAM IN NS 250 ML (STARTED)
     Route: 042
     Dates: start: 20180111, end: 20180111
  2. FERRIC CARBOXYMALTOSE [Suspect]
     Active Substance: FERRIC CARBOXYMALTOSE
     Indication: Iron deficiency anaemia
     Dosage: 525 MILLIGRAM IN NS 250 ML (STARTED)
     Dates: start: 20180118, end: 20180118
  3. FERRIC CARBOXYMALTOSE [Suspect]
     Active Substance: FERRIC CARBOXYMALTOSE
     Dosage: 525 MILLIGRAM IN NS 250 ML (PLANNED)
     Route: 042
     Dates: start: 20180717, end: 20180717
  4. FERRIC CARBOXYMALTOSE [Suspect]
     Active Substance: FERRIC CARBOXYMALTOSE
     Dosage: 525 MILLIGRAM IN NS 250 ML (PLANNED)
     Route: 042
     Dates: start: 20180724, end: 20180724
  5. FERRIC CARBOXYMALTOSE [Suspect]
     Active Substance: FERRIC CARBOXYMALTOSE
     Dosage: 525 MILLIGRAM IN NS 250 ML (PLANNED)
     Route: 042
     Dates: start: 20180818, end: 20180818
  6. FERRIC CARBOXYMALTOSE [Suspect]
     Active Substance: FERRIC CARBOXYMALTOSE
     Dosage: 525 MILLIGRAM IN NS 250 ML (PLANNED)
     Route: 042
     Dates: start: 20180825, end: 20180825
  7. FERRIC CARBOXYMALTOSE [Suspect]
     Active Substance: FERRIC CARBOXYMALTOSE
     Dosage: 525 MILLIGRAM IN NS 250 ML (STARTED)
     Route: 042
     Dates: start: 20190415, end: 20190415
  8. FERRIC CARBOXYMALTOSE [Suspect]
     Active Substance: FERRIC CARBOXYMALTOSE
     Dosage: 525 MILLIGRAM IN NS 250 ML (PLANNED)
     Route: 042
     Dates: start: 20190423, end: 20190423
  9. FERRIC CARBOXYMALTOSE [Suspect]
     Active Substance: FERRIC CARBOXYMALTOSE
     Dosage: 525 MILLIGRAM IN NS 250 ML (PLANNED)
     Route: 042
     Dates: start: 20191028, end: 20191028
  10. FERRIC CARBOXYMALTOSE [Suspect]
     Active Substance: FERRIC CARBOXYMALTOSE
     Dosage: 275 MILLIGRAM IN NS 250 ML (STARTED)
     Route: 042
     Dates: start: 20191122, end: 20191122
  11. FERRIC CARBOXYMALTOSE [Suspect]
     Active Substance: FERRIC CARBOXYMALTOSE
     Dosage: 275 MILLIGRAM IN NS 250 ML (PLANNED)
     Route: 042
     Dates: start: 20200421, end: 20200421
  12. ALBUTEROL SULFATE [Concomitant]
     Active Substance: ALBUTEROL SULFATE
     Indication: Product used for unknown indication
     Dosage: INHALE 1-2 PUFFS INTO THE LUNGS EVERY 4 HOURS
  13. ARNICA                             /01006901/ [Concomitant]
     Indication: Product used for unknown indication
     Dosage: UNK
     Route: 065
  14. VITAMIN C                          /00008001/ [Concomitant]
     Indication: Product used for unknown indication
     Dosage: 500 MILLIGRAM, QD
     Route: 048
  15. ALKA-SELTZER ORIGINAL [Concomitant]
     Active Substance: ANHYDROUS CITRIC ACID\ASPIRIN\SODIUM BICARBONATE
     Indication: Product used for unknown indication
     Dosage: UNK
     Route: 048
  16. QVAR [Concomitant]
     Active Substance: BECLOMETHASONE DIPROPIONATE
     Indication: Asthma
     Dosage: INHALE 2 PUFFS INTO THE LUNGS DAILY

REACTIONS (16)
  - Multiple fractures [Not Recovered/Not Resolved]
  - Stress fracture [Not Recovered/Not Resolved]
  - Pain in extremity [Not Recovered/Not Resolved]
  - Musculoskeletal chest pain [Not Recovered/Not Resolved]
  - Myalgia [Not Recovered/Not Resolved]
  - Tarsal tunnel syndrome [Not Recovered/Not Resolved]
  - Joint laxity [Not Recovered/Not Resolved]
  - Pain [Not Recovered/Not Resolved]
  - Hypophosphataemia [Recovering/Resolving]
  - Osteomalacia [Not Recovered/Not Resolved]
  - Arthralgia [Not Recovered/Not Resolved]
  - Headache [Not Recovered/Not Resolved]
  - Anhedonia [Not Recovered/Not Resolved]
  - Emotional distress [Not Recovered/Not Resolved]
  - Anxiety [Not Recovered/Not Resolved]
  - Product quality issue [Unknown]

NARRATIVE: CASE EVENT DATE: 20180101
